FAERS Safety Report 5764898-7 (Version None)
Quarter: 2008Q2

REPORT INFORMATION
  Report Type: 
  Country: None (occurrence: None)
  Receive Date: 20080611
  Receipt Date: 20080609
  Transmission Date: 20081010
  Serious: Yes (Other)
  Sender: FDA-Public Use
  Company Number: A0692091A

PATIENT
  Age: 42 Year
  Sex: Female
  Weight: 70 kg

DRUGS (2)
  1. ALLI [Suspect]
     Indication: WEIGHT LOSS DIET
     Route: 048
     Dates: start: 20071021
  2. ALLERGY SHOT [Concomitant]

REACTIONS (18)
  - ABDOMINAL PAIN UPPER [None]
  - DIARRHOEA [None]
  - EMOTIONAL DISORDER [None]
  - FLATULENCE [None]
  - FLUID RETENTION [None]
  - GASTROENTERITIS VIRAL [None]
  - GASTROINTESTINAL DISORDER [None]
  - GASTROINTESTINAL INFECTION [None]
  - MYCOTIC ALLERGY [None]
  - OBSESSIVE THOUGHTS [None]
  - OEDEMA [None]
  - OEDEMA PERIPHERAL [None]
  - RECTAL DISCHARGE [None]
  - STEATORRHOEA [None]
  - SWELLING FACE [None]
  - THERAPEUTIC RESPONSE UNEXPECTED [None]
  - WEIGHT FLUCTUATION [None]
  - WEIGHT INCREASED [None]
